FAERS Safety Report 20767081 (Version 2)
Quarter: 2022Q2

REPORT INFORMATION
  Report Type: Spontaneous
  Country: CO (occurrence: CO)
  Receive Date: 20220429
  Receipt Date: 20220429
  Transmission Date: 20220721
  Serious: Yes (Other)
  Sender: FDA-Public Use
  Company Number: CO-ENDO PHARMACEUTICALS INC-2022-001537

PATIENT
  Age: 60 Year
  Sex: Male

DRUGS (2)
  1. AVEED [Suspect]
     Active Substance: TESTOSTERONE UNDECANOATE
     Indication: Product used for unknown indication
     Dosage: UNK UNKNOWN, UNKNOWN
     Route: 065
  2. AVEED [Suspect]
     Active Substance: TESTOSTERONE UNDECANOATE
     Dosage: UNK UNKNOWN, UNKNOWN
     Route: 065

REACTIONS (18)
  - Apnoea [Unknown]
  - Erectile dysfunction [Unknown]
  - Dyspnoea [Unknown]
  - Genital pain [Not Recovered/Not Resolved]
  - Eye pain [Unknown]
  - Pain [Unknown]
  - Vision blurred [Unknown]
  - Hypoaesthesia [Unknown]
  - Spinal pain [Not Recovered/Not Resolved]
  - Arthralgia [Not Recovered/Not Resolved]
  - Abdominal pain [Not Recovered/Not Resolved]
  - Malaise [Unknown]
  - Testicular pain [Unknown]
  - Alopecia [Unknown]
  - Headache [Unknown]
  - Infertility male [Not Recovered/Not Resolved]
  - Suspected counterfeit product [Unknown]
  - Wrong technique in product usage process [Unknown]

NARRATIVE: CASE EVENT DATE: 20220222
